FAERS Safety Report 5768325-5 (Version None)
Quarter: 2008Q2

REPORT INFORMATION
  Report Type: 
  Country: None (occurrence: None)
  Receive Date: 20080612
  Receipt Date: 20080520
  Transmission Date: 20081010
  Serious: No
  Sender: FDA-Public Use
  Company Number: US-ABBOTT-08P-163-0432466-00

PATIENT
  Sex: Female
  Weight: 86.26 kg

DRUGS (3)
  1. HUMIRA [Suspect]
     Indication: PSORIATIC ARTHROPATHY
     Route: 058
     Dates: start: 20070201, end: 20070222
  2. HUMIRA [Suspect]
     Route: 058
     Dates: start: 20071201
  3. TUBERCULOSIS MEDICATIONS [Suspect]
     Indication: TUBERCULIN TEST POSITIVE
     Route: 048
     Dates: start: 20070301, end: 20070601

REACTIONS (3)
  - ACCIDENTAL EXPOSURE [None]
  - HEPATIC ENZYME INCREASED [None]
  - TUBERCULIN TEST POSITIVE [None]
